FAERS Safety Report 13286915 (Version 3)
Quarter: 2017Q2

REPORT INFORMATION
  Report Type: Spontaneous
  Country: FR (occurrence: FR)
  Receive Date: 20170302
  Receipt Date: 20170414
  Transmission Date: 20170830
  Serious: Yes (Other)
  Sender: FDA-Public Use
  Company Number: FR-009507513-1702FRA012222

PATIENT
  Age: 28 Year
  Sex: Female

DRUGS (10)
  1. EMEND [Suspect]
     Active Substance: APREPITANT
     Indication: PREMEDICATION
     Dosage: 1 DF, QD
     Route: 048
     Dates: start: 20170207, end: 20170209
  2. UROMITEXAN [Concomitant]
     Active Substance: MESNA
     Dosage: UNK
     Dates: start: 2017
  3. METHYLPREDNISOLONE. [Concomitant]
     Active Substance: METHYLPREDNISOLONE
     Indication: PREMEDICATION
     Dosage: UNK
     Route: 042
     Dates: start: 20170206, end: 20170209
  4. IFOSFAMIDE. [Interacting]
     Active Substance: IFOSFAMIDE
     Indication: SYNOVIAL SARCOMA RECURRENT
     Dosage: 3040 MG, QD, STRENGTH:40MG/ML
     Route: 042
     Dates: start: 20170206, end: 20170210
  5. IFOSFAMIDE. [Interacting]
     Active Substance: IFOSFAMIDE
     Dosage: UNK, SWITCH OVER 3 HOURS
     Route: 042
     Dates: start: 20170227, end: 20170301
  6. EMEND [Interacting]
     Active Substance: APREPITANT
     Dosage: UNK
     Dates: start: 2017
  7. ONDANSETRON ACCORD [Concomitant]
     Active Substance: ONDANSETRON
     Indication: PREMEDICATION
     Dosage: UNK
     Route: 042
     Dates: start: 20170206, end: 20170209
  8. ONDANSETRON ACCORD [Concomitant]
     Active Substance: ONDANSETRON
     Dosage: UNK
     Dates: start: 2017
  9. UROMITEXAN [Concomitant]
     Active Substance: MESNA
     Indication: PROPHYLAXIS
     Dosage: UNK
     Route: 042
     Dates: start: 20170206, end: 20170209
  10. METHYLPREDNISOLONE. [Concomitant]
     Active Substance: METHYLPREDNISOLONE
     Dosage: UNK
     Dates: start: 2017

REACTIONS (1)
  - Encephalopathy [Recovered/Resolved]

NARRATIVE: CASE EVENT DATE: 20170210
